FAERS Safety Report 7577995-0 (Version None)
Quarter: 2011Q2

REPORT INFORMATION
  Report Type: 
  Country: None (occurrence: None)
  Receive Date: 20110628
  Receipt Date: 20110620
  Transmission Date: 20111010
  Serious: Yes (Hospitalization)
  Sender: FDA-Public Use
  Company Number: JP-ROCHE-785670

PATIENT
  Age: 65 Year
  Sex: Female
  Weight: 41 kg

DRUGS (4)
  1. PEGASYS [Suspect]
     Indication: HEPATITIS C
     Route: 058
     Dates: start: 20100930, end: 20110422
  2. MUCOSTA [Concomitant]
     Dosage: SINGLE USE
     Route: 048
     Dates: start: 20100930, end: 20110218
  3. PURSENNID [Concomitant]
     Dosage: SINGLE USE
     Route: 048
     Dates: start: 20101006, end: 20101022
  4. COPEGUS [Suspect]
     Indication: HEPATITIS C
     Route: 048
     Dates: start: 20100930, end: 20110427

REACTIONS (3)
  - PULMONARY TUBERCULOSIS [None]
  - PYREXIA [None]
  - PRURIGO [None]
